FAERS Safety Report 9099557 (Version 1)
Quarter: 2013Q1

REPORT INFORMATION
  Report Type: Other
  Country: JP (occurrence: JP)
  Receive Date: 20130214
  Receipt Date: 20130214
  Transmission Date: 20140127
  Serious: Yes (Other)
  Sender: FDA-Public Use
  Company Number: JP-BRISTOL-MYERS SQUIBB COMPANY-17370602

PATIENT
  Age: 19 Year
  Sex: Female

DRUGS (3)
  1. VEPESID [Suspect]
     Indication: BRAIN NEOPLASM
     Dosage: ON D1 AND DAY 3
  2. CISPLATIN [Suspect]
     Indication: BRAIN NEOPLASM
     Dosage: ON DAY 2
  3. CYCLOPHOSPHAMIDE [Suspect]
     Indication: BRAIN NEOPLASM
     Dosage: ON D1 TO D5?REDUCED TO 1 DOSE FROM 2 DOSE

REACTIONS (4)
  - Mucous membrane disorder [Unknown]
  - Febrile neutropenia [Unknown]
  - Convulsion [Unknown]
  - Hyponatraemia [Unknown]
